FAERS Safety Report 4479103-1 (Version None)
Quarter: 2004Q3

REPORT INFORMATION
  Report Type: 
  Country: None (occurrence: None)
  Receive Date: 20040923
  Receipt Date: 20040819
  Transmission Date: 20050211
  Serious: Yes (Life-Threatening, Hospitalization)
  Sender: FDA-Public Use
  Company Number: 208559

PATIENT
  Age: 80 Year
  Sex: Male

DRUGS (1)
  1. AVASTIN [Suspect]
     Indication: COLON CANCER
     Dosage: 390 MG, INTRAVENOUS
     Route: 042
     Dates: start: 20040804

REACTIONS (2)
  - ABDOMINAL ABSCESS [None]
  - GASTROINTESTINAL PERFORATION [None]
